FAERS Safety Report 9495467 (Version 2)
Quarter: 2013Q3

REPORT INFORMATION
  Report Type: Spontaneous
  Country: DE (occurrence: DE)
  Receive Date: 20130903
  Receipt Date: 20130904
  Transmission Date: 20140515
  Serious: Yes (Hospitalization)
  Sender: FDA-Public Use
  Company Number: DE-SANOFI-AVENTIS-2013SA086802

PATIENT
  Age: 47 Year
  Sex: Female

DRUGS (9)
  1. CLEXANE [Suspect]
     Indication: THROMBOSIS
     Route: 065
     Dates: start: 20130701
  2. VISMODEGIB [Concomitant]
     Indication: BASAL CELL CARCINOMA
     Route: 048
     Dates: start: 20130327
  3. COLECALCIFEROL [Concomitant]
     Indication: HYSTERECTOMY
     Dosage: TOTAL DAILY DOSE: 1000IE
     Dates: start: 201001
  4. ESTROFEM [Concomitant]
     Indication: HYSTERECTOMY
     Dates: start: 200901, end: 20130423
  5. ESTROFEM [Concomitant]
     Indication: HYSTERECTOMY
     Dates: start: 20130425
  6. TENORMIN [Concomitant]
     Indication: HYPERTENSION
     Dates: start: 200801, end: 20130423
  7. TENORMIN [Concomitant]
     Indication: HYPERTENSION
     Dates: start: 20130425
  8. EUTHYROX [Concomitant]
     Indication: HYPERTHYROIDISM
     Dates: start: 200701
  9. UREA [Concomitant]
     Indication: DRY SKIN
     Dosage: DAILY DOSE 1-2
     Dates: start: 20130424

REACTIONS (1)
  - Knee operation [Recovered/Resolved]
